FAERS Safety Report 7596962-4 (Version None)
Quarter: 2011Q3

REPORT INFORMATION
  Report Type: 
  Country: None (occurrence: None)
  Receive Date: 20110708
  Receipt Date: 20110705
  Transmission Date: 20111222
  Serious: Yes (Hospitalization)
  Sender: FDA-Public Use
  Company Number: GB-SANOFI-AVENTIS-2011SA005332

PATIENT
  Age: 57 Year
  Sex: Male
  Weight: 91 kg

DRUGS (1)
  1. ENOXAPARIN SODIUM [Suspect]
     Indication: ANTIPHOSPHOLIPID SYNDROME
     Route: 058
     Dates: start: 20101212, end: 20101214

REACTIONS (7)
  - LETHARGY [None]
  - ORAL PAIN [None]
  - RENAL FAILURE ACUTE [None]
  - MOUTH ULCERATION [None]
  - DEHYDRATION [None]
  - LUPUS NEPHRITIS [None]
  - DYSPNOEA [None]
